FAERS Safety Report 17531363 (Version 1)
Quarter: 2020Q1

REPORT INFORMATION
  Report Type: Spontaneous
  Country: AU (occurrence: AU)
  Receive Date: 20200311
  Receipt Date: 20200311
  Transmission Date: 20200409
  Serious: Yes (Other)
  Sender: FDA-Public Use
  Company Number: AU-ASTRAZENECA-2020SE33833

PATIENT
  Sex: Male

DRUGS (1)
  1. DURVALUMAB. [Suspect]
     Active Substance: DURVALUMAB
     Route: 042

REACTIONS (1)
  - Metastases to central nervous system [Unknown]
